FAERS Safety Report 13225106 (Version 1)
Quarter: 2017Q1

REPORT INFORMATION
  Report Type: Spontaneous
  Country: CH (occurrence: CH)
  Receive Date: 20170213
  Receipt Date: 20170213
  Transmission Date: 20170428
  Serious: Yes (Other)
  Sender: FDA-Public Use
  Company Number: CH-AMGEN-CHESP2017021072

PATIENT
  Age: 60 Year
  Sex: Female
  Weight: 72.4 kg

DRUGS (11)
  1. PROLIA [Suspect]
     Active Substance: DENOSUMAB
     Indication: OSTEOPENIA
  2. CRESTOR [Concomitant]
     Active Substance: ROSUVASTATIN CALCIUM
     Dosage: 10 MG, 0-0-1
     Route: 048
  3. REDORMIN [Concomitant]
     Dosage: UNK
     Route: 048
  4. VITAMIN D3 STREULI [Concomitant]
     Dosage: 1 ML, QWK
     Route: 048
  5. ESOMEPRAZOLE [Suspect]
     Active Substance: ESOMEPRAZOLE
     Indication: PRODUCT USED FOR UNKNOWN INDICATION
     Dosage: 40 MG, QD
     Route: 048
  6. BECOZYME [Concomitant]
     Active Substance: VITAMINS
     Dosage: (1-0-0-1-2)
     Route: 048
  7. KALCIPOS D3 [Concomitant]
     Dosage: 500/800 1-0-0
     Route: 048
  8. ELTROXIN LF [Concomitant]
     Dosage: 0.1 MG, 1-0-0
     Route: 048
  9. NOCTAMID [Concomitant]
     Active Substance: LORMETAZEPAM
     Dosage: UNK, AS NECESSARY
     Route: 048
  10. PROLIA [Suspect]
     Active Substance: DENOSUMAB
     Indication: OSTEOPOROSIS
     Dosage: 60 MG, Q6MO
     Route: 058
     Dates: start: 201211, end: 201405
  11. NICOTINE. [Concomitant]
     Active Substance: NICOTINE
     Dosage: UNK

REACTIONS (2)
  - Rebound effect [Not Recovered/Not Resolved]
  - Bone density decreased [Not Recovered/Not Resolved]

NARRATIVE: CASE EVENT DATE: 2014
